FAERS Safety Report 16775568 (Version 5)
Quarter: 2020Q1

REPORT INFORMATION
  Report Type: Report from Study
  Country: US (occurrence: US)
  Receive Date: 20190905
  Receipt Date: 20200304
  Transmission Date: 20200409
  Serious: Yes (Other)
  Sender: FDA-Public Use
  Company Number: US-TAKEDA-2019TUS050907

PATIENT
  Sex: Female
  Weight: 51 kg

DRUGS (2)
  1. PONATINIB [Suspect]
     Active Substance: PONATINIB
     Indication: CHRONIC MYELOID LEUKAEMIA
     Dosage: 30 MILLIGRAM, QD
     Route: 048
     Dates: start: 201908
  2. PONATINIB [Suspect]
     Active Substance: PONATINIB
     Dosage: 15 MILLIGRAM, QD
     Route: 048

REACTIONS (7)
  - Cardiac disorder [Unknown]
  - Bone pain [Unknown]
  - Memory impairment [Unknown]
  - Pigmentation disorder [Recovering/Resolving]
  - Dry eye [Unknown]
  - Photosensitivity reaction [Unknown]
  - Blood pressure increased [Unknown]
